FAERS Safety Report 6019671-1 (Version None)
Quarter: 2008Q4

REPORT INFORMATION
  Report Type: 
  Country: None (occurrence: None)
  Receive Date: 20081223
  Receipt Date: 20071114
  Transmission Date: 20090506
  Serious: Yes (Other)
  Sender: FDA-Public Use
  Company Number: US-WYE-H01297507

PATIENT
  Age: 40 Year
  Sex: Female
  Weight: 61.74 kg

DRUGS (3)
  1. PRIMATENE MIST [Suspect]
     Indication: DYSPNOEA
     Dosage: 1 INHALATION X 1, INHALATION
     Route: 055
     Dates: start: 20071111, end: 20071111
  2. ALBUTEROL [Concomitant]
  3. ORAL CONTRACEPTIVE NOS (ORAL CONTRACEPTIVE NOS) [Concomitant]

REACTIONS (1)
  - ASTHMA [None]
